FAERS Safety Report 5659425-9 (Version None)
Quarter: 2008Q1

REPORT INFORMATION
  Report Type: 
  Country: None (occurrence: None)
  Receive Date: 20080311
  Receipt Date: 20080220
  Transmission Date: 20080703
  Serious: Yes (Hospitalization)
  Sender: FDA-Public Use
  Company Number: TR-RANBAXY-2007RR-11449

PATIENT

DRUGS (4)
  1. LAMIVUDINE [Suspect]
     Dosage: 4 MG/KG, UNK
  2. TACROLIMUS [Suspect]
  3. SODIUM BICARBONATE [Concomitant]
  4. SIROLIMUS [Concomitant]

REACTIONS (3)
  - HYPERGLYCAEMIA [None]
  - MYOPATHY [None]
  - RENAL IMPAIRMENT [None]
